FAERS Safety Report 5945720-2 (Version None)
Quarter: 2008Q4

REPORT INFORMATION
  Report Type: 
  Country: None (occurrence: None)
  Receive Date: 20081105
  Receipt Date: 20081024
  Transmission Date: 20090506
  Serious: Yes (Hospitalization)
  Sender: FDA-Public Use
  Company Number: 0280

PATIENT
  Age: 4 Year
  Sex: Male

DRUGS (6)
  1. INDOMETHACIN [Suspect]
     Indication: NEPHROTIC SYNDROME
     Dosage: 25 MG, PO
     Route: 048
     Dates: start: 20080401, end: 20080819
  2. INDOMETHACIN [Suspect]
     Indication: NEPHROTIC SYNDROME
     Dosage: 25 MG, PO
     Route: 048
     Dates: start: 20080828
  3. ACENOCOUMAROL [Concomitant]
  4. ENALAPRIL MALEATE [Concomitant]
  5. LOSARTAN POTASSIUM [Concomitant]
  6. SIMVASTATIN [Concomitant]

REACTIONS (1)
  - SEPTIC ARTHRITIS STAPHYLOCOCCAL [None]
